FAERS Safety Report 7398819-0 (Version None)
Quarter: 2011Q2

REPORT INFORMATION
  Report Type: 
  Country: None (occurrence: None)
  Receive Date: 20110404
  Receipt Date: 20110404
  Transmission Date: 20111010
  Serious: Yes (Death)
  Sender: FDA-Public Use
  Company Number: None

PATIENT
  Sex: Female
  Weight: 98 kg

DRUGS (4)
  1. BUSULFAN [Suspect]
     Indication: STEM CELL TRANSPLANT
     Dosage: 112 MG 4XDAILY X 4 DAYS ORAL
     Dates: start: 20101118, end: 20101121
  2. BUSULFAN [Suspect]
     Indication: ACUTE LYMPHOCYTIC LEUKAEMIA
     Dosage: 112 MG 4XDAILY X 4 DAYS ORAL
     Dates: start: 20101118, end: 20101121
  3. CYCLOPHOSPHAMIDE [Suspect]
     Indication: ACUTE LYMPHOCYTIC LEUKAEMIA
     Dosage: 5280 DAILY X 2 IV
     Route: 042
     Dates: start: 20101122, end: 20101123
  4. CYCLOPHOSPHAMIDE [Suspect]
     Indication: STEM CELL TRANSPLANT
     Dosage: 5280 DAILY X 2 IV
     Route: 042
     Dates: start: 20101122, end: 20101123

REACTIONS (7)
  - MULTI-ORGAN FAILURE [None]
  - RESPIRATORY SYNCYTIAL VIRUS INFECTION [None]
  - RENAL FAILURE [None]
  - LUNG INFECTION [None]
  - ACUTE GRAFT VERSUS HOST DISEASE IN INTESTINE [None]
  - GRAFT VERSUS HOST DISEASE IN LUNG [None]
  - STAPHYLOCOCCAL INFECTION [None]
